FAERS Safety Report 16987415 (Version 1)
Quarter: 2019Q4

REPORT INFORMATION
  Report Type: Other
  Country: CN (occurrence: CN)
  Receive Date: 20191102
  Receipt Date: 20191102
  Transmission Date: 20200122
  Serious: Yes (Other)
  Sender: FDA-Public Use
  Company Number: CN-VALIDUS PHARMACEUTICALS LLC-CN-2019VAL000681

PATIENT

DRUGS (6)
  1. CELECOXIB. [Concomitant]
     Active Substance: CELECOXIB
     Indication: BACK PAIN
     Dosage: 1 DF, (1DF,2 IN 1 D)
     Route: 048
     Dates: start: 20190716
  2. CALCITONIN, SALMON [Concomitant]
     Active Substance: CALCITONIN SALMON
     Indication: BACK PAIN
     Dosage: 1 DF, (50 DF,1 IN 1 D)
     Route: 030
     Dates: start: 20190716
  3. FLURBIPROFEN. [Suspect]
     Active Substance: FLURBIPROFEN
     Indication: BACK PAIN
     Dosage: 1 DF, (1 DF,2 IN 1 D)
     Route: 065
     Dates: start: 20190716
  4. VITAMIN D3 [Suspect]
     Active Substance: CHOLECALCIFEROL
     Indication: BACK PAIN
     Dosage: 1 DF, (1 DF,2 IN 1 D)
     Route: 048
     Dates: start: 20190716
  5. TIZANIDINE HYDROCHLORIDE. [Concomitant]
     Active Substance: TIZANIDINE HYDROCHLORIDE
     Indication: BACK PAIN
     Dosage: 1 DF, (1 DF,2 IN 1 D)
     Route: 048
     Dates: start: 20190716
  6. ROCALTROL [Suspect]
     Active Substance: CALCITRIOL
     Indication: BACK PAIN
     Dosage: 1 DF, (1 DF,1 IN 1 D)
     Route: 048
     Dates: start: 20190716, end: 20190716

REACTIONS (3)
  - Intentional product use issue [Unknown]
  - Off label use [Unknown]
  - Contusion [Unknown]

NARRATIVE: CASE EVENT DATE: 20190716
